FAERS Safety Report 8863092 (Version 1)
Quarter: 2012Q4

REPORT INFORMATION
  Report Type: 
  Country: FR (occurrence: FR)
  Receive Date: 20121026
  Receipt Date: 20121026
  Transmission Date: 20130627
  Serious: Yes (Other)
  Sender: FDA-Public Use
  Company Number: FR-PFIZER INC-2012261424

PATIENT
  Age: 60 Year
  Sex: Male

DRUGS (35)
  1. EFFEXOR LP [Suspect]
     Indication: DEPRESSION
     Dosage: 75 mg, daily
     Route: 048
     Dates: start: 20120313, end: 20120330
  2. KEPPRA [Suspect]
     Indication: EPILEPSY
     Dosage: 500 mg, 1x/day
     Route: 048
     Dates: start: 20120312, end: 20120312
  3. KEPPRA [Suspect]
     Dosage: 500 mg, 2x/day
     Route: 048
     Dates: start: 20120313, end: 20120322
  4. SOLU-MEDROL [Concomitant]
     Dosage: 1 DF, single
     Dates: start: 20120306, end: 20120306
  5. SIMULECT [Concomitant]
     Dosage: 20 mg, single
     Dates: start: 20120310, end: 20120310
  6. CORTANCYL [Concomitant]
     Indication: TRANSPLANT
     Dosage: 20 mg, in the moring
     Dates: start: 20120307, end: 20120313
  7. CORTANCYL [Concomitant]
     Dosage: UNK
     Dates: start: 20120314, end: 20120329
  8. CORTANCYL [Concomitant]
     Dosage: 5 mg, daily
     Dates: start: 20120330
  9. CALCIPARIN [Concomitant]
     Indication: TRANSPLANT
     Dosage: 5000 IU, 2x/day
     Dates: start: 20120307, end: 20120308
  10. CALCIPARIN [Concomitant]
     Dosage: 0.3 ml, 2x/day
     Dates: start: 20120309
  11. PROGRAF [Concomitant]
     Indication: TRANSPLANT
     Dosage: 6 mg, 2x/day
     Dates: start: 20120307, end: 20120311
  12. PROGRAF [Concomitant]
     Dosage: 6 mg, 1x/day
     Dates: start: 20120312, end: 20120329
  13. PROGRAF [Concomitant]
     Dosage: 2 mg, in the morning and in the evening
     Dates: start: 20120330
  14. CELLCEPT [Concomitant]
     Indication: TRANSPLANT
     Dosage: 500 mg twice in the morning and twice in the evening
     Dates: start: 20120307
  15. PERFALGAN [Concomitant]
     Indication: TRANSPLANT
     Dosage: 1 g, every eight hours
     Dates: start: 20120307
  16. DOLIPRANE [Concomitant]
     Indication: TRANSPLANT
     Dosage: UNK
  17. ROVALCYTE [Concomitant]
     Indication: TRANSPLANT
     Dosage: 450 mg, alternate day
     Dates: start: 20120307
  18. BACTRIM [Concomitant]
     Indication: TRANSPLANT
     Dosage: 0.5 DF, alternate day
     Dates: start: 20120307
  19. KIVEXA [Concomitant]
     Indication: TRANSPLANT
     Dosage: UNK
     Dates: start: 20120307
  20. EUPANTOL [Concomitant]
     Indication: TRANSPLANT
     Dosage: 40 mg, daily
     Dates: start: 20120307
  21. PRAVASTATIN [Concomitant]
     Indication: HYPERTRIGLYCERIDAEMIA
     Dosage: 20 mg, 1x/day
     Dates: end: 20120330
  22. ISENTRESS [Concomitant]
     Indication: HIV INFECTION
     Dosage: 2, daily
  23. EPIVIR [Concomitant]
     Indication: HIV INFECTION
     Dosage: 50 mg, daily
  24. RETROVIR [Concomitant]
     Indication: HIV INFECTION
     Dosage: 250 mg, 1x/day
  25. KARDEGIC [Concomitant]
     Indication: HYPERTENSIVE CARDIOMYOPATHY
     Dosage: UNK
  26. BISOPROLOL [Concomitant]
     Indication: HYPERTENSIVE CARDIOMYOPATHY
     Dosage: UNK
  27. BISOPROLOL [Concomitant]
     Dosage: 2.5 mg, daily
  28. LEXOMIL [Concomitant]
     Dosage: UNK
     Dates: end: 20120311
  29. LEXOMIL [Concomitant]
     Dosage: UNK
     Dates: start: 20120319
  30. IMOVANE [Concomitant]
     Dosage: 1 DF, daily
     Dates: start: 20120309, end: 20120313
  31. XANAX [Concomitant]
     Dosage: UNK
     Dates: start: 20120311, end: 20120313
  32. RIVOTRIL [Concomitant]
     Indication: EPILEPSY
     Dosage: 2 ampoules, UNK
     Dates: start: 20120312
  33. LOXAPAC [Concomitant]
     Indication: DEPRESSION
     Dosage: 25 drops, UNK
     Dates: start: 20120313
  34. XATRAL [Concomitant]
     Dosage: UNK
  35. SPECIAFOLDINE [Concomitant]
     Dosage: UNK

REACTIONS (2)
  - Hepatic enzyme increased [Recovered/Resolved]
  - Sepsis [Unknown]
